FAERS Safety Report 4698496-3 (Version None)
Quarter: 2005Q2

REPORT INFORMATION
  Report Type: 
  Country: None (occurrence: None)
  Receive Date: 20050621
  Receipt Date: 20050603
  Transmission Date: 20051028
  Serious: Yes (Other)
  Sender: FDA-Public Use
  Company Number: FR_050606576

PATIENT
  Age: 68 Year
  Sex: Male

DRUGS (1)
  1. GEMZAR [Suspect]
     Indication: HEPATIC NEOPLASM MALIGNANT
     Dosage: 2 G OTHER
     Route: 050
     Dates: start: 20050501

REACTIONS (3)
  - COLITIS ULCERATIVE [None]
  - DIARRHOEA [None]
  - THERAPY NON-RESPONDER [None]
